FAERS Safety Report 14267000 (Version 2)
Quarter: 2018Q4

REPORT INFORMATION
  Report Type: Spontaneous
  Country: FR (occurrence: FR)
  Receive Date: 20171211
  Receipt Date: 20181022
  Transmission Date: 20190204
  Serious: Yes (Death, Life-Threatening, Hospitalization, Other)
  Sender: FDA-Public Use
  Company Number: FR-ACCORD-061690

PATIENT
  Age: 67 Year
  Sex: Male

DRUGS (2)
  1. MYCOPHENOLIC ACID. [Suspect]
     Active Substance: MYCOPHENOLIC ACID
     Indication: IMMUNOSUPPRESSION
     Dosage: REDUCTION IN THE MMF DOSAGE (500 MG TWICE A DAY)
  2. BELATACEPT [Suspect]
     Active Substance: BELATACEPT
     Indication: IMMUNOSUPPRESSION
     Dosage: 10 MG/KG ON DAY 1 (D1), D5, WEEK 2 (W2), W4, W8, W12
     Route: 042

REACTIONS (6)
  - Progressive multifocal leukoencephalopathy [Fatal]
  - BK virus infection [Unknown]
  - Epstein-Barr viraemia [Unknown]
  - Respiratory failure [Fatal]
  - Cytomegalovirus infection [Unknown]
  - JC virus infection [Fatal]

NARRATIVE: CASE EVENT DATE: 201506
